FAERS Safety Report 6714126-0 (Version None)
Quarter: 2010Q2

REPORT INFORMATION
  Report Type: 
  Country: None (occurrence: None)
  Receive Date: 20100506
  Receipt Date: 20100429
  Transmission Date: 20101027
  Serious: Yes (Other)
  Sender: FDA-Public Use
  Company Number: FR-ABBOTT-10P-056-0641814-00

PATIENT
  Age: 36 Year
  Sex: Male

DRUGS (1)
  1. DEPAKOTE [Suspect]
     Indication: DRUG USE FOR UNKNOWN INDICATION
     Dosage: GASTRO-RESISTANT TABLET
     Route: 048
     Dates: end: 20100301

REACTIONS (1)
  - PLEURAL EFFUSION [None]
